FAERS Safety Report 8172509-9 (Version None)
Quarter: 2012Q1

REPORT INFORMATION
  Report Type: 
  Country: None (occurrence: None)
  Receive Date: 20120227
  Receipt Date: 20120227
  Transmission Date: 20120608
  Serious: Yes (Hospitalization)
  Sender: FDA-Public Use
  Company Number: None

PATIENT
  Age: 67 Year
  Sex: Female
  Weight: 127.5 kg

DRUGS (6)
  1. LASIX [Concomitant]
  2. DIOVAN HCT [Concomitant]
  3. AUGMENTIN '125' [Suspect]
     Indication: RESPIRATORY TRACT INFECTION
     Dosage: PO
     Route: 048
  4. AZATHIOPRINE [Concomitant]
  5. LIPITOR [Concomitant]
  6. PREDNISONE TAB [Concomitant]

REACTIONS (7)
  - LIVER TRANSPLANT [None]
  - BLOOD BILIRUBIN INCREASED [None]
  - FATIGUE [None]
  - MENTAL STATUS CHANGES [None]
  - NAUSEA [None]
  - JAUNDICE [None]
  - INTERNATIONAL NORMALISED RATIO INCREASED [None]
